FAERS Safety Report 14317794 (Version 1)
Quarter: 2017Q4

REPORT INFORMATION
  Report Type: Spontaneous
  Country: US (occurrence: US)
  Receive Date: 20171221
  Receipt Date: 20171221
  Transmission Date: 20180321
  Serious: Yes (Hospitalization)
  Sender: FDA-Public Use
  Company Number: None

PATIENT
  Age: 57 Year
  Sex: Male
  Weight: 225 kg

DRUGS (10)
  1. PERIDEX [Concomitant]
     Active Substance: CHLORHEXIDINE GLUCONATE
  2. KEPPRA [Concomitant]
     Active Substance: LEVETIRACETAM
  3. PERCOCET [Concomitant]
     Active Substance: ACETAMINOPHEN\OXYCODONE HYDROCHLORIDE
  4. DARZALEX [Suspect]
     Active Substance: DARATUMUMAB
     Indication: PLASMA CELL MYELOMA
     Dosage: ?          OTHER FREQUENCY:ONCE;?
     Route: 041
  5. PEPCID [Concomitant]
     Active Substance: FAMOTIDINE
  6. HUMULIN R [Concomitant]
     Active Substance: INSULIN HUMAN
  7. DARZALEX [Suspect]
     Active Substance: DARATUMUMAB
     Indication: PLASMA CELL MYELOMA
     Dosage: ?          OTHER FREQUENCY:ONCE;?
     Route: 041
  8. MYCOSTATIN POWDER [Concomitant]
  9. DUONEB [Concomitant]
     Active Substance: ALBUTEROL SULFATE\IPRATROPIUM BROMIDE
  10. COREG [Concomitant]
     Active Substance: CARVEDILOL

REACTIONS (6)
  - Oxygen saturation decreased [None]
  - Cellulitis [None]
  - Dyspnoea [None]
  - Infusion related reaction [None]
  - Acute respiratory failure [None]
  - Laryngeal oedema [None]

NARRATIVE: CASE EVENT DATE: 20171219
